FAERS Safety Report 7885463-1 (Version None)
Quarter: 2011Q4

REPORT INFORMATION
  Report Type: 
  Country: None (occurrence: None)
  Receive Date: 20111102
  Receipt Date: 20111026
  Transmission Date: 20120403
  Serious: Yes (Other)
  Sender: FDA-Public Use
  Company Number: US-RB-033675-11

PATIENT
  Age: 47 Year
  Sex: Male

DRUGS (1)
  1. SUBOXONE [Suspect]
     Indication: PRODUCT USED FOR UNKNOWN INDICATION
     Dosage: DOSING DETAILS UNKNOWN
     Route: 060

REACTIONS (7)
  - INSOMNIA [None]
  - DIZZINESS [None]
  - FEELING ABNORMAL [None]
  - HALLUCINATION, VISUAL [None]
  - CONSTIPATION [None]
  - HEADACHE [None]
  - NAUSEA [None]
